FAERS Safety Report 16052807 (Version 1)
Quarter: 2019Q1

REPORT INFORMATION
  Report Type: Spontaneous
  Country: FR (occurrence: FR)
  Receive Date: 20190308
  Receipt Date: 20190308
  Transmission Date: 20190418
  Serious: Yes (Death)
  Sender: FDA-Public Use
  Company Number: FR-MYLANLABS-2019M1020972

PATIENT
  Age: 73 Year
  Sex: Female
  Weight: 86.4 kg

DRUGS (11)
  1. NORADRENALINE                      /00127501/ [Suspect]
     Active Substance: NOREPINEPHRINE
     Indication: SUPPORTIVE CARE
     Dosage: 100 MILLIGRAM, QD
     Route: 042
     Dates: start: 20180802, end: 20180817
  2. DEROXAT [Suspect]
     Active Substance: PAROXETINE HYDROCHLORIDE
     Indication: DEPRESSION
     Dosage: 20 MILLIGRAM, QD
     Route: 048
     Dates: start: 20180618, end: 20180816
  3. ABSTRAL [Suspect]
     Active Substance: FENTANYL CITRATE
     Indication: PAIN
     Dosage: 100 MICROGRAM, BID
     Route: 060
     Dates: start: 20180730, end: 20180817
  4. TOBRAMYCINE                        /00304201/ [Suspect]
     Active Substance: TOBRAMYCIN
     Indication: LUNG INFECTION
     Dosage: 450 MILLIGRAM, QD
     Route: 042
     Dates: start: 20180803, end: 20180813
  5. ATARAX [Suspect]
     Active Substance: HYDROXYZINE HYDROCHLORIDE
     Indication: ANXIETY
     Dosage: 100 MILLIGRAM, QD
     Route: 042
     Dates: start: 20180730, end: 20180815
  6. FUMAFER [Suspect]
     Active Substance: FERROUS FUMARATE
     Indication: IRON DEFICIENCY
     Dosage: 33 MILLIGRAM, QD
     Route: 048
     Dates: start: 20180717, end: 20180817
  7. NEURONTIN [Suspect]
     Active Substance: GABAPENTIN
     Indication: NEURALGIA
     Dosage: 100 MILLIGRAM, Q8H
     Route: 048
     Dates: start: 20180802, end: 20180816
  8. KARDEGIC [Suspect]
     Active Substance: ASPIRIN DL-LYSINE
     Indication: ISCHAEMIC HEART DISEASE PROPHYLAXIS
     Dosage: 160 MILLIGRAM, QD
     Route: 048
     Dates: start: 20180504, end: 20180816
  9. VANCOMYCIN [Suspect]
     Active Substance: VANCOMYCIN
     Indication: LUNG INFECTION
     Dosage: 2000 MILLIGRAM, QD
     Route: 042
     Dates: start: 20180730, end: 20180816
  10. TRAMADOL. [Suspect]
     Active Substance: TRAMADOL
     Indication: PAIN
     Dosage: 100 MILLIGRAM, Q8H
     Route: 048
     Dates: start: 20180725, end: 20180816
  11. ZERBAXA [Suspect]
     Active Substance: CEFTOLOZANE SULFATE\TAZOBACTAM SODIUM
     Indication: LUNG INFECTION
     Dosage: 500 MILLIGRAM, Q8H
     Route: 042
     Dates: start: 20180804, end: 20180816

REACTIONS (2)
  - Renal failure [Fatal]
  - Encephalopathy [Fatal]

NARRATIVE: CASE EVENT DATE: 20180811
